FAERS Safety Report 7540926-3 (Version None)
Quarter: 2011Q2

REPORT INFORMATION
  Report Type: 
  Country: None (occurrence: None)
  Receive Date: 20110610
  Receipt Date: 20110607
  Transmission Date: 20111010
  Serious: Yes (Other)
  Sender: FDA-Public Use
  Company Number: CO-PFIZER INC-2010112281

PATIENT
  Age: 53 Year
  Sex: Male

DRUGS (2)
  1. LYRICA [Suspect]
     Dosage: 150 MG, 2X/DAY
  2. LYRICA [Suspect]
     Indication: NEUROPATHY PERIPHERAL
     Dosage: 75 MG, 2X/DAY
     Route: 048
     Dates: start: 20080101

REACTIONS (2)
  - RENAL FUNCTION TEST ABNORMAL [None]
  - DRUG DISPENSING ERROR [None]
